FAERS Safety Report 4713408-1 (Version None)
Quarter: 2005Q3

REPORT INFORMATION
  Report Type: 
  Country: None (occurrence: None)
  Receive Date: 20050701
  Receipt Date: 20041110
  Transmission Date: 20060218
  Serious: Yes (Other)
  Sender: FDA-Public Use
  Company Number: US-2004-034122

PATIENT
  Age: 29 Year
  Sex: Female

DRUGS (4)
  1. YASMIN [Suspect]
     Indication: ORAL CONTRACEPTION
     Dosage: 1 TAB(S), 1X/DAY, ORAL
     Route: 048
     Dates: start: 20041001
  2. ALDACTONE [Suspect]
  3. MULTIVITAMINS (PANTHENOL, RETINOL) [Concomitant]
  4. DIOXIN VITAMIN [Concomitant]

REACTIONS (2)
  - ERYTHEMA MULTIFORME [None]
  - HEADACHE [None]
